FAERS Safety Report 7959268-7 (Version None)
Quarter: 2011Q4

REPORT INFORMATION
  Report Type: 
  Country: None (occurrence: None)
  Receive Date: 20111206
  Receipt Date: 20110408
  Transmission Date: 20120403
  Serious: No
  Sender: FDA-Public Use
  Company Number: US-ABBOTT-11P-163-0694769-00

PATIENT
  Sex: Male
  Weight: 19.068 kg

DRUGS (1)
  1. OMNICEF [Suspect]
     Indication: PHARYNGITIS STREPTOCOCCAL
     Dosage: 1/2 TEASPOON 2 TIMES A DAY
     Dates: start: 20101219, end: 20101226

REACTIONS (5)
  - ERYTHEMA [None]
  - MYALGIA [None]
  - URTICARIA [None]
  - PYREXIA [None]
  - ABDOMINAL DISTENSION [None]
